FAERS Safety Report 7075445-4 (Version None)
Quarter: 2010Q4

REPORT INFORMATION
  Report Type: 
  Country: None (occurrence: None)
  Receive Date: 20101030
  Receipt Date: 20101020
  Transmission Date: 20110411
  Serious: No
  Sender: FDA-Public Use
  Company Number: US-WYE-H17546410

PATIENT
  Age: 38 Year
  Sex: Female
  Weight: 52.21 kg

DRUGS (1)
  1. ADVIL PM [Suspect]
     Indication: INSOMNIA
     Route: 048
     Dates: start: 20100801, end: 20100901

REACTIONS (1)
  - DRUG INEFFECTIVE [None]
